FAERS Safety Report 19376239 (Version 1)
Quarter: 2021Q2

REPORT INFORMATION
  Report Type: Spontaneous
  Country: TR (occurrence: TR)
  Receive Date: 20210604
  Receipt Date: 20210604
  Transmission Date: 20210717
  Serious: Yes (Hospitalization)
  Sender: FDA-Public Use
  Company Number: TR-MYLANLABS-2021M1032995

PATIENT
  Age: 44 Year
  Sex: Female

DRUGS (1)
  1. LEPONEX [Suspect]
     Active Substance: CLOZAPINE
     Indication: SCHIZOPHRENIA
     Dosage: 3 DF, QD, STARTED: ONE YEAR AGO, 100 MG TABLET AT MORNING?NOON?EVENING (3X1)
     Route: 065

REACTIONS (3)
  - Product supply issue [Unknown]
  - Mental disorder [Unknown]
  - Amnesia [Unknown]
